FAERS Safety Report 8477386-4 (Version None)
Quarter: 2012Q2

REPORT INFORMATION
  Report Type: 
  Country: None (occurrence: None)
  Receive Date: 20120629
  Receipt Date: 20120625
  Transmission Date: 20120825
  Serious: Yes (Other)
  Sender: FDA-Public Use
  Company Number: US-BAYER-2012-063207

PATIENT
  Age: 21 Year
  Sex: Female

DRUGS (1)
  1. MIRENA [Suspect]
     Dosage: 20 MCG/24HR, CONT
     Route: 015
     Dates: start: 20120501, end: 20120621

REACTIONS (16)
  - APATHY [None]
  - INSOMNIA [None]
  - ACNE [None]
  - URINARY TRACT INFECTION [None]
  - PELVIC PAIN [None]
  - VAGINAL CYST [None]
  - FATIGUE [None]
  - DEPRESSION [None]
  - PERSONALITY DISORDER [None]
  - ANAEMIA [None]
  - LOSS OF LIBIDO [None]
  - MENORRHAGIA [None]
  - DEPRESSED MOOD [None]
  - VAGINITIS BACTERIAL [None]
  - FUNGAL INFECTION [None]
  - ANXIETY [None]
